FAERS Safety Report 4844760-4 (Version None)
Quarter: 2005Q4

REPORT INFORMATION
  Report Type: 
  Country: None (occurrence: None)
  Receive Date: 20051205
  Receipt Date: 20051121
  Transmission Date: 20060501
  Serious: Yes (Other)
  Sender: FDA-Public Use
  Company Number: JP-JNJFOC-20051105126

PATIENT
  Sex: Female

DRUGS (2)
  1. ORTHO 777-21 [Suspect]
     Indication: CONTRACEPTION
  2. AZITHROMYCIN [Interacting]
     Dates: start: 20051111, end: 20051113

REACTIONS (2)
  - DRUG INTERACTION [None]
  - METRORRHAGIA [None]
